FAERS Safety Report 25517471 (Version 1)
Quarter: 2025Q3

REPORT INFORMATION
  Report Type: Report from Study
  Country: EU (occurrence: EU)
  Receive Date: 20250704
  Receipt Date: 20250704
  Transmission Date: 20251021
  Serious: Yes (Death, Other)
  Sender: CELLTRION
  Company Number: EU-PFIZER INC-202500034872

PATIENT

DRUGS (3)
  1. RITUXIMAB [Suspect]
     Active Substance: RITUXIMAB
     Indication: Granulomatous lymphadenitis
     Dosage: 375 MG/M2 EVERY 1 WEEK (375 MG/M2, WEEKLY)
  2. RITUXIMAB [Suspect]
     Active Substance: RITUXIMAB
     Dosage: 375 MG/M2 EVERY 1 MONTH (375 MG/M2, WEEKLY)
  3. BENDAMUSTINE [Suspect]
     Active Substance: BENDAMUSTINE
     Indication: Granulomatous lymphadenitis

REACTIONS (6)
  - Death [Fatal]
  - Pancytopenia [Unknown]
  - Subcutaneous abscess [Unknown]
  - Bacterial infection [Unknown]
  - Septic shock [Unknown]
  - Intentional product use issue [Unknown]
